FAERS Safety Report 23285374 (Version 1)
Quarter: 2023Q4

REPORT INFORMATION
  Report Type: Spontaneous
  Country: US (occurrence: US)
  Receive Date: 20231211
  Receipt Date: 20231211
  Transmission Date: 20240110
  Serious: Yes (Other)
  Sender: FDA-Public Use
  Company Number: US-BRISTOL-MYERS SQUIBB COMPANY-2023-175555

PATIENT
  Sex: Female

DRUGS (1)
  1. DEUCRAVACITINIB [Suspect]
     Active Substance: DEUCRAVACITINIB
     Indication: Product used for unknown indication
     Dosage: DOSE : UNAVAILABLE;     FREQ : UNKNOWN, NOT PROVIDED IN EMAIL.

REACTIONS (3)
  - Urticaria [Unknown]
  - Kidney infection [Unknown]
  - Urinary tract infection [Unknown]
